FAERS Safety Report 7415168-2 (Version None)
Quarter: 2011Q2

REPORT INFORMATION
  Report Type: 
  Country: None (occurrence: None)
  Receive Date: 20110414
  Receipt Date: 20110405
  Transmission Date: 20111010
  Serious: Yes (Disabling)
  Sender: FDA-Public Use
  Company Number: PHHY2011FR30546

PATIENT
  Sex: Female

DRUGS (3)
  1. CELLCEPT [Concomitant]
     Dosage: 750 MG, BID
  2. NEORAL [Suspect]
     Dosage: 75 MG, BID
  3. NEORAL [Suspect]
     Indication: LIVER TRANSPLANT
     Dosage: 50 MG, BID

REACTIONS (3)
  - BLOOD CREATININE INCREASED [None]
  - RENAL FAILURE CHRONIC [None]
  - RENAL IMPAIRMENT [None]
